FAERS Safety Report 5509905-1 (Version None)
Quarter: 2007Q4

REPORT INFORMATION
  Report Type: 
  Country: None (occurrence: None)
  Receive Date: 20071108
  Receipt Date: 20071103
  Transmission Date: 20080405
  Serious: Yes (Death, Life-Threatening, Hospitalization)
  Sender: FDA-Public Use
  Company Number: IR-WYE-H01036407

PATIENT
  Sex: Male
  Weight: 71 kg

DRUGS (1)
  1. RAPAMUNE [Suspect]
     Indication: IMMUNOSUPPRESSANT DRUG THERAPY
     Route: 048
     Dates: end: 20071023

REACTIONS (3)
  - ACUTE MYOCARDIAL INFARCTION [None]
  - PULMONARY CONGESTION [None]
  - TRANSPLANT REJECTION [None]
